FAERS Safety Report 8916665 (Version 2)
Quarter: 2013Q1

REPORT INFORMATION
  Report Type: Spontaneous
  Country: DK (occurrence: BE)
  Receive Date: 20121120
  Receipt Date: 20130104
  Transmission Date: 20140127
  Serious: Yes (Congenital Anomaly)
  Sender: FDA-Public Use
  Company Number: BE-FRI-1000040473

PATIENT
  Sex: 0
  Weight: 3 kg

DRUGS (3)
  1. ESCITALOPRAM [Suspect]
     Dosage: 10 MG
     Route: 064
  2. XANAX RETARD [Concomitant]
     Dosage: 0.5 MG
  3. RIVOTRIL [Concomitant]
     Dosage: 1 MG

REACTIONS (2)
  - Prader-Willi syndrome [Unknown]
  - Foetal exposure during pregnancy [Unknown]
